FAERS Safety Report 5208740-1 (Version None)
Quarter: 2007Q1

REPORT INFORMATION
  Report Type: 
  Country: None (occurrence: None)
  Receive Date: 20070111
  Receipt Date: 20070111
  Transmission Date: 20070707
  Serious: Yes (Life-Threatening, Hospitalization, Disabling, Other)
  Sender: FDA-Public Use
  Company Number: None

PATIENT
  Age: 46 Year
  Sex: Female
  Weight: 66.2252 kg

DRUGS (5)
  1. FENTANYL [Suspect]
     Indication: NEURALGIA
     Dosage: 150 MG QOD TRANSDERMAL
     Route: 062
     Dates: start: 20031015, end: 20060701
  2. FENTANYL [Suspect]
     Indication: NEUROPATHY
     Dosage: 150 MG QOD TRANSDERMAL
     Route: 062
     Dates: start: 20031015, end: 20060701
  3. PERCOCET [Concomitant]
  4. FLEXERIL [Concomitant]
  5. CYMBALTA [Concomitant]

REACTIONS (8)
  - ABASIA [None]
  - DRUG INEFFECTIVE [None]
  - DRUG WITHDRAWAL SYNDROME [None]
  - IMPAIRED WORK ABILITY [None]
  - LOSS OF CONSCIOUSNESS [None]
  - OVERDOSE [None]
  - PAIN [None]
  - PHARMACEUTICAL PRODUCT COMPLAINT [None]
